FAERS Safety Report 5939053-8 (Version None)
Quarter: 2008Q4

REPORT INFORMATION
  Report Type: 
  Country: None (occurrence: None)
  Receive Date: 20081103
  Receipt Date: 20081031
  Transmission Date: 20090506
  Serious: Yes (Other)
  Sender: FDA-Public Use
  Company Number: A0754637A

PATIENT
  Age: 64 Year
  Sex: Male

DRUGS (1)
  1. NICORETTE [Suspect]
     Indication: SMOKING CESSATION THERAPY
     Dosage: 12GUM PER DAY
     Route: 002
     Dates: start: 20060101

REACTIONS (3)
  - INTENTIONAL DRUG MISUSE [None]
  - MUSCLE SPASMS [None]
  - PNEUMONECTOMY [None]
